APPROVED DRUG PRODUCT: DUTASTERIDE
Active Ingredient: DUTASTERIDE
Strength: 0.5MG
Dosage Form/Route: CAPSULE;ORAL
Application: A207935 | Product #001
Applicant: HERITAGE PHARMACEUTICALS INC
Approved: Oct 13, 2017 | RLD: No | RS: No | Type: DISCN